FAERS Safety Report 8158419-1 (Version None)
Quarter: 2012Q1

REPORT INFORMATION
  Report Type: 
  Country: None (occurrence: None)
  Receive Date: 20120217
  Receipt Date: 20111220
  Transmission Date: 20120608
  Serious: Yes (Hospitalization)
  Sender: FDA-Public Use
  Company Number: 001075378

PATIENT
  Sex: Female

DRUGS (1)
  1. PROACTIV 30 DAY KIT [Suspect]
     Indication: ACNE
     Dosage: DAILY

REACTIONS (3)
  - LIP SWELLING [None]
  - URTICARIA [None]
  - EYE SWELLING [None]
